FAERS Safety Report 8076986 (Version 2)
Quarter: 2013Q3

REPORT INFORMATION
  Report Type: Spontaneous
  Country: US (occurrence: US)
  Receive Date: 20110806
  Receipt Date: 20130730
  Transmission Date: 20140515
  Serious: No
  Sender: FDA-Public Use
  Company Number: US-ABBOTT-11P-163-0727663-00

PATIENT
  Sex: Female
  Weight: 68.1 kg

DRUGS (3)
  1. NIASPAN (COATED) 1000MG [Suspect]
     Indication: PRODUCT USED FOR UNKNOWN INDICATION
     Dosage: APPROXIMATELY 4 YEARS
     Route: 048
     Dates: start: 2009
  2. LISINOPRIL HCTZ [Concomitant]
     Indication: PRODUCT USED FOR UNKNOWN INDICATION
     Dosage: 20/25
  3. DECLINED LIST [Concomitant]
     Indication: PRODUCT USED FOR UNKNOWN INDICATION

REACTIONS (2)
  - Flushing [Not Recovered/Not Resolved]
  - Skin burning sensation [Not Recovered/Not Resolved]
